FAERS Safety Report 6315958-3 (Version None)
Quarter: 2009Q3

REPORT INFORMATION
  Report Type: 
  Country: None (occurrence: None)
  Receive Date: 20090820
  Receipt Date: 20090120
  Transmission Date: 20100115
  Serious: No
  Sender: FDA-Public Use
  Company Number: US-KINGPHARMUSA00001-K200900074

PATIENT

DRUGS (1)
  1. CYTOMEL [Suspect]
     Indication: THYROID HORMONE REPLACEMENT THERAPY

REACTIONS (1)
  - RASH [None]
